FAERS Safety Report 7276421-9 (Version None)
Quarter: 2011Q1

REPORT INFORMATION
  Report Type: 
  Country: None (occurrence: None)
  Receive Date: 20110204
  Receipt Date: 20110128
  Transmission Date: 20110831
  Serious: Yes (Other)
  Sender: FDA-Public Use
  Company Number: BR-PFIZER INC-2011015003

PATIENT
  Age: 58 Year
  Sex: Male
  Weight: 85 kg

DRUGS (4)
  1. ALPRAZOLAM [Concomitant]
     Indication: ANXIETY
     Dosage: 1 MG, 1X/DAY
     Dates: start: 20090101
  2. XALATAN [Suspect]
     Indication: GLAUCOMA
     Dosage: 3 UG, 1X/DAY
     Route: 047
     Dates: start: 20100101
  3. TIMOLOL MALEATE [Suspect]
     Indication: GLAUCOMA
     Route: 047
  4. ALPRAZOLAM [Concomitant]
     Indication: NERVOUS SYSTEM DISORDER

REACTIONS (7)
  - HEART RATE DECREASED [None]
  - CATARACT OPERATION [None]
  - ANXIETY [None]
  - FOREIGN BODY SENSATION IN EYES [None]
  - EYE IRRITATION [None]
  - INCORRECT DOSE ADMINISTERED [None]
  - DYSPNOEA [None]
